FAERS Safety Report 13906362 (Version 4)
Quarter: 2020Q3

REPORT INFORMATION
  Report Type: Report from Study
  Country: CO (occurrence: CO)
  Receive Date: 20170825
  Receipt Date: 20200722
  Transmission Date: 20201102
  Serious: Yes (Life-Threatening, Hospitalization, Other)
  Sender: FDA-Public Use
  Company Number: PHHY2017CO108158

PATIENT
  Age: 75 Year
  Sex: Male
  Weight: 68 kg

DRUGS (5)
  1. JADENU [Suspect]
     Active Substance: DEFERASIROX
     Indication: APLASIA
     Dosage: 360 MG, BID
     Route: 048
     Dates: start: 20170710
  2. JADENU [Suspect]
     Active Substance: DEFERASIROX
     Dosage: 360 MG, BID (2 OF 360 MG)
     Route: 065
  3. JADENU [Suspect]
     Active Substance: DEFERASIROX
     Indication: IRON OVERLOAD
     Dosage: UNK
     Route: 048
  4. JADENU [Suspect]
     Active Substance: DEFERASIROX
     Dosage: 360 MG, QD
     Route: 048
     Dates: end: 20171030
  5. JADENU [Suspect]
     Active Substance: DEFERASIROX
     Dosage: 360 MG, QD (2 TABLETS)
     Route: 048

REACTIONS (11)
  - Insomnia [Unknown]
  - Renal failure [Unknown]
  - Serum ferritin increased [Unknown]
  - Blood creatinine increased [Unknown]
  - Chest pain [Unknown]
  - Blood iron increased [Unknown]
  - Haemoglobin decreased [Unknown]
  - Product use in unapproved indication [Unknown]
  - Drug ineffective [Unknown]
  - Fatigue [Unknown]
  - Abdominal pain [Unknown]

NARRATIVE: CASE EVENT DATE: 20170710
